FAERS Safety Report 23046643 (Version 1)
Quarter: 2023Q4

REPORT INFORMATION
  Report Type: Spontaneous
  Country: CA (occurrence: CA)
  Receive Date: 20231009
  Receipt Date: 20231009
  Transmission Date: 20240110
  Serious: Yes (Other)
  Sender: FDA-Public Use
  Company Number: CA-FreseniusKabi-FK202315858

PATIENT
  Age: 32 Year
  Sex: Female

DRUGS (13)
  1. ETOPOSIDE [Suspect]
     Active Substance: ETOPOSIDE
     Indication: Angiocentric lymphoma
     Dosage: DOSAGE FORM: NOT SPECIFIED
     Route: 042
  2. ETOPOSIDE [Suspect]
     Active Substance: ETOPOSIDE
     Route: 042
  3. IFOSFAMIDE [Suspect]
     Active Substance: IFOSFAMIDE
     Indication: Angiocentric lymphoma
     Route: 042
  4. IFOSFAMIDE [Suspect]
     Active Substance: IFOSFAMIDE
     Route: 042
  5. MESNA [Suspect]
     Active Substance: MESNA
     Indication: Angiocentric lymphoma
     Route: 042
  6. MESNA [Suspect]
     Active Substance: MESNA
     Dosage: DOSAGE FORM: NOT SPECIFIED
     Route: 042
  7. LEUCOVORIN [Suspect]
     Active Substance: LEUCOVORIN\LEUCOVORIN CALCIUM
     Indication: Angiocentric lymphoma
     Dosage: 1500 MG/M2 4 TIMES EVERY 1 DAY
     Route: 042
  8. LEUCOVORIN [Suspect]
     Active Substance: LEUCOVORIN\LEUCOVORIN CALCIUM
     Dosage: 1500 MG/M2 4 TIMES EVERY 1 DAY
     Route: 042
  9. DEXAMETHASONE [Suspect]
     Active Substance: DEXAMETHASONE
     Indication: Angiocentric lymphoma
     Route: 065
  10. GRANULOCYTE COLONY-STIMULATING FACTOR NOS [Suspect]
     Active Substance: GRANULOCYTE COLONY-STIMULATING FACTOR NOS
     Indication: Angiocentric lymphoma
     Route: 065
  11. ASPARAGINASE [Suspect]
     Active Substance: ASPARAGINASE
     Indication: Angiocentric lymphoma
     Route: 030
  12. ASPARAGINASE [Suspect]
     Active Substance: ASPARAGINASE
     Route: 030
  13. METHOTREXATE [Suspect]
     Active Substance: METHOTREXATE
     Indication: Angiocentric lymphoma
     Route: 048

REACTIONS (2)
  - Second primary malignancy [Recovered/Resolved]
  - T-cell lymphoma refractory [Recovered/Resolved]
